FAERS Safety Report 7671991-0 (Version None)
Quarter: 2011Q3

REPORT INFORMATION
  Report Type: 
  Country: None (occurrence: None)
  Receive Date: 20110809
  Receipt Date: 20110805
  Transmission Date: 20111222
  Serious: Yes (Other)
  Sender: FDA-Public Use
  Company Number: CA-ABBOTT-11P-028-0844297-00

PATIENT
  Sex: Male
  Weight: 71.278 kg

DRUGS (1)
  1. LUPRON DEPOT [Suspect]
     Indication: PROSTATE CANCER
     Route: 030
     Dates: start: 20080122, end: 20110121

REACTIONS (4)
  - BONE NEOPLASM MALIGNANT [None]
  - PROSTATE CANCER [None]
  - MALAISE [None]
  - LIVER INJURY [None]
